FAERS Safety Report 4601580-3 (Version None)
Quarter: 2005Q1

REPORT INFORMATION
  Report Type: 
  Country: None (occurrence: None)
  Receive Date: 20050202
  Receipt Date: 20040707
  Transmission Date: 20050727
  Serious: Yes (Hospitalization)
  Sender: FDA-Public Use
  Company Number: 8006604

PATIENT
  Age: 50 Year
  Sex: Male
  Weight: 68 kg

DRUGS (7)
  1. KEPPRA [Suspect]
     Indication: EPILEPSY
     Dosage: PO
     Route: 048
     Dates: start: 20010701
  2. KEPPRA [Suspect]
     Indication: EPILEPSY
     Dosage: 2250 MG PO
     Route: 048
     Dates: end: 20040128
  3. KEPPRA [Suspect]
     Indication: EPILEPSY
     Dosage: 1750 MG PO
     Route: 048
     Dates: start: 20040129, end: 20040226
  4. KEPPRA [Suspect]
     Indication: EPILEPSY
     Dosage: 1500 MG 2/D PO
     Route: 048
     Dates: start: 20040227
  5. DILANTIN [Concomitant]
  6. LAMICTAL [Concomitant]
  7. KLONOPIN [Concomitant]

REACTIONS (1)
  - PANCREATITIS [None]
